FAERS Safety Report 8602784-5 (Version None)
Quarter: 2012Q3

REPORT INFORMATION
  Report Type: 
  Country: None (occurrence: None)
  Receive Date: 20120817
  Receipt Date: 20120809
  Transmission Date: 20120928
  Serious: Yes (Hospitalization)
  Sender: FDA-Public Use
  Company Number: AT-JNJFOC-20120801821

PATIENT
  Sex: Male
  Weight: 86 kg

DRUGS (15)
  1. REMICADE [Suspect]
     Route: 042
     Dates: start: 20110203
  2. REMICADE [Suspect]
     Route: 042
     Dates: start: 20101129
  3. REMICADE [Suspect]
     Route: 042
     Dates: start: 20110819
  4. RAMIPRIL [Concomitant]
     Indication: CORONARY ARTERY DISEASE
     Route: 048
  5. REMICADE [Suspect]
     Route: 042
     Dates: start: 20101223
  6. REMICADE [Suspect]
     Route: 042
     Dates: start: 20110901
  7. ASPIRIN [Concomitant]
     Indication: CORONARY ARTERY DISEASE
     Route: 048
     Dates: end: 20120228
  8. REMICADE [Suspect]
     Route: 042
     Dates: start: 20110418
  9. ENTEROBENE [Concomitant]
     Indication: COLITIS ULCERATIVE
     Route: 048
     Dates: end: 20120225
  10. SANDIMMUNE [Concomitant]
     Indication: COLITIS
     Route: 042
     Dates: start: 20120220, end: 20120229
  11. SIMVASTATIN [Concomitant]
     Indication: HYPERLIPIDAEMIA
     Route: 048
  12. REMICADE [Suspect]
     Indication: COLITIS ULCERATIVE
     Route: 042
     Dates: start: 20110524
  13. REMICADE [Suspect]
     Route: 042
     Dates: start: 20110712
  14. REMICADE [Suspect]
     Route: 042
     Dates: start: 20101115
  15. ENTEROCORT [Concomitant]
     Indication: COLITIS ULCERATIVE
     Route: 048

REACTIONS (1)
  - PROCTITIS ULCERATIVE [None]
